FAERS Safety Report 13778754 (Version 3)
Quarter: 2018Q2

REPORT INFORMATION
  Report Type: Report from Study
  Country: ZA (occurrence: ZA)
  Receive Date: 20170721
  Receipt Date: 20180620
  Transmission Date: 20180711
  Serious: Yes (Other)
  Sender: FDA-Public Use
  Company Number: PHHY2016ZA126695

PATIENT
  Age: 19 Year
  Sex: Female
  Weight: 47.1 kg

DRUGS (2)
  1. DESFERAL [Suspect]
     Active Substance: DEFEROXAMINE MESYLATE
     Indication: THALASSAEMIA
     Dosage: UNK (TIATRATION DOSE)
     Route: 065
     Dates: start: 1999
  2. EXJADE [Suspect]
     Active Substance: DEFERASIROX
     Indication: THALASSAEMIA
     Dosage: 1500 MG, QD (1500 UG/LITER)
     Route: 065
     Dates: start: 20170217

REACTIONS (17)
  - Speech disorder [Recovering/Resolving]
  - Wound infection [Recovered/Resolved]
  - Gastric disorder [Unknown]
  - Malaise [Recovering/Resolving]
  - Tongue blistering [Recovered/Resolved]
  - Bone pain [Unknown]
  - Glossodynia [Not Recovered/Not Resolved]
  - Muscle spasms [Unknown]
  - Asthenia [Unknown]
  - Weight decreased [Recovering/Resolving]
  - Drug level increased [Unknown]
  - Abdominal pain upper [Unknown]
  - Injection site abscess [Unknown]
  - Scratch [Recovered/Resolved]
  - Urinary tract infection [Recovering/Resolving]
  - Peripheral swelling [Recovered/Resolved]
  - Diarrhoea [Unknown]

NARRATIVE: CASE EVENT DATE: 20170302
